FAERS Safety Report 5248902-0 (Version None)
Quarter: 2007Q1

REPORT INFORMATION
  Report Type: 
  Country: None (occurrence: None)
  Receive Date: 20070228
  Receipt Date: 20070214
  Transmission Date: 20070707
  Serious: Yes (Hospitalization)
  Sender: FDA-Public Use
  Company Number: 2007CG00273

PATIENT
  Age: 54 Year
  Sex: Male

DRUGS (9)
  1. OMEPRAZOLE [Suspect]
     Route: 048
     Dates: start: 20061220
  2. TRAMADOL HCL [Suspect]
     Route: 048
     Dates: start: 20061226
  3. CALCIPARINE [Suspect]
     Route: 058
     Dates: start: 20061228, end: 20070112
  4. KARDEGIC [Suspect]
     Route: 048
     Dates: start: 20061206
  5. TIENAM [Suspect]
     Route: 042
     Dates: start: 20061209
  6. RIVOTRIL [Suspect]
     Route: 048
     Dates: start: 20061212
  7. IMOVANE [Suspect]
     Route: 048
     Dates: start: 20061212
  8. NITROGLYCERIN [Suspect]
     Route: 062
     Dates: start: 20061121
  9. CALCIDIA [Suspect]
     Route: 048
     Dates: start: 20061206

REACTIONS (3)
  - ECZEMA [None]
  - PRURITUS [None]
  - RASH ERYTHEMATOUS [None]
